FAERS Safety Report 4724554-0 (Version None)
Quarter: 2005Q3

REPORT INFORMATION
  Report Type: 
  Country: None (occurrence: None)
  Receive Date: 20050726
  Receipt Date: 20050705
  Transmission Date: 20060218
  Serious: Yes (Life-Threatening)
  Sender: FDA-Public Use
  Company Number: JP-BRISTOL-MYERS SQUIBB COMPANY-13027859

PATIENT
  Age: 46 Year
  Sex: Male

DRUGS (6)
  1. TAXOL [Suspect]
     Indication: NON-SMALL CELL LUNG CANCER
     Route: 041
     Dates: start: 20050612, end: 20050612
  2. PARAPLATIN [Suspect]
     Indication: NON-SMALL CELL LUNG CANCER
     Route: 041
     Dates: start: 20050612, end: 20050612
  3. DEXAMETHASONE [Concomitant]
     Route: 041
     Dates: start: 20050524, end: 20050612
  4. FAMOTIDINE [Concomitant]
     Route: 041
     Dates: start: 20050524, end: 20050612
  5. PREDONINE [Concomitant]
     Route: 041
     Dates: start: 20050520, end: 20050523
  6. GLYCEOL [Concomitant]
     Route: 041
     Dates: start: 20050520, end: 20050612

REACTIONS (2)
  - DUODENAL PERFORATION [None]
  - DUODENAL ULCER [None]
